FAERS Safety Report 18797664 (Version 1)
Quarter: 2021Q1

REPORT INFORMATION
  Report Type: Report from Study
  Country: ZA (occurrence: ZA)
  Receive Date: 20210128
  Receipt Date: 20210128
  Transmission Date: 20210419
  Serious: Yes (Hospitalization, Other)
  Sender: FDA-Public Use
  Company Number: ZA-SA-2014SA061227

PATIENT
  Age: 52 Year
  Sex: Female
  Weight: 103 kg

DRUGS (7)
  1. PREDNISONE. [Concomitant]
     Active Substance: PREDNISONE
     Dosage: 2.5 MG,QD
     Route: 048
     Dates: start: 20111201
  2. CALTRATE PLUS [BORON;CALCIUM;COLECALCIFEROL;COPPER;MAGNESIUM;MANGANESE [Concomitant]
     Indication: PROPHYLAXIS
     Dosage: UNK UNK,UNK
     Route: 048
     Dates: start: 20110712
  3. METHOTREXATE. [Suspect]
     Active Substance: METHOTREXATE
     Indication: RHEUMATOID ARTHRITIS
     Dosage: 25 MG,QW
     Route: 048
     Dates: start: 20110928
  4. SARILUMAB [Suspect]
     Active Substance: SARILUMAB
     Indication: RHEUMATOID ARTHRITIS
     Dosage: 200 MG,QOW
     Route: 058
     Dates: start: 20130319, end: 20140429
  5. FOLIC ACID. [Suspect]
     Active Substance: FOLIC ACID
     Indication: RHEUMATOID ARTHRITIS
     Dosage: 5 MG,QD
     Route: 048
     Dates: start: 20110712
  6. ATENOLOL. [Concomitant]
     Active Substance: ATENOLOL
     Dosage: UNK UNK,UNK
     Route: 048
     Dates: start: 2005
  7. AMILORETIC [AMILORIDE;HYDROCHLOROTHIAZIDE] [Concomitant]
     Dosage: UNK UNK,UNK
     Route: 048
     Dates: start: 2005

REACTIONS (5)
  - Pancreas infection [Recovered/Resolved]
  - Pancreatic pseudocyst haemorrhage [Recovered/Resolved]
  - Pancreatitis acute [Recovered/Resolved]
  - Duodenal perforation [Recovered/Resolved]
  - Dermatophytosis of nail [Recovering/Resolving]

NARRATIVE: CASE EVENT DATE: 20131201
